FAERS Safety Report 8382628-X (Version None)
Quarter: 2012Q1

REPORT INFORMATION
  Report Type: 
  Country: None (occurrence: None)
  Receive Date: 20120323
  Receipt Date: 20111010
  Transmission Date: 20120608
  Serious: Yes (Hospitalization)
  Sender: FDA-Public Use
  Company Number: 163-21880-11051639

PATIENT
  Age: 83 Year
  Sex: Male

DRUGS (2)
  1. ANTICOAGULANT (ALL OTHER THERAPEUTIC PRODUCTS) [Concomitant]
  2. REVLIMID [Suspect]
     Indication: MULTIPLE MYELOMA
     Dosage: 15 MG, DAILY 21/28, PO
     Route: 048
     Dates: start: 20110315

REACTIONS (2)
  - RECTAL HAEMORRHAGE [None]
  - PNEUMONIA [None]
